FAERS Safety Report 4308021-4 (Version None)
Quarter: 2004Q1

REPORT INFORMATION
  Report Type: 
  Country: None (occurrence: None)
  Receive Date: 20040301
  Receipt Date: 20030319
  Transmission Date: 20041129
  Serious: No
  Sender: FDA-Public Use
  Company Number: US-BRISTOL-MYERS SQUIBB COMPANY-12218020

PATIENT
  Age: 37 Year
  Sex: Female
  Weight: 63 kg

DRUGS (2)
  1. GLUCOPHAGE [Suspect]
     Indication: HYPERINSULINISM
     Dosage: DURATION OF THERAPY:  ^2.5 - 3 YEARS^
     Route: 048
  2. PRENATAL VITAMINS [Concomitant]

REACTIONS (1)
  - PREGNANCY [None]
